FAERS Safety Report 7068947-8 (Version None)
Quarter: 2010Q4

REPORT INFORMATION
  Report Type: 
  Country: None (occurrence: None)
  Receive Date: 20101020
  Receipt Date: 20101011
  Transmission Date: 20110411
  Serious: Yes (Death, Other)
  Sender: FDA-Public Use
  Company Number: 2010EU005336

PATIENT
  Age: 43 Year
  Sex: Female

DRUGS (2)
  1. TACROLIMUS [Suspect]
     Indication: ORGAN TRANSPLANT
  2. MYCOPHENOLIC ACID [Suspect]
     Indication: ORGAN TRANSPLANT

REACTIONS (6)
  - ACUTE GRAFT VERSUS HOST DISEASE IN LIVER [None]
  - ANAEMIA [None]
  - FUNGAL SEPSIS [None]
  - HAEMOGLOBIN ABNORMAL [None]
  - HAEMOLYSIS [None]
  - LYMPHOCYTOSIS [None]
